FAERS Safety Report 5657958-2 (Version None)
Quarter: 2008Q1

REPORT INFORMATION
  Report Type: 
  Country: None (occurrence: None)
  Receive Date: 20080305
  Receipt Date: 20080221
  Transmission Date: 20080703
  Serious: Yes (Other)
  Sender: FDA-Public Use
  Company Number: 100#03#2008-01031

PATIENT
  Age: 65 Year
  Sex: Male

DRUGS (8)
  1. CIPROFLOXACIN [Suspect]
     Indication: LOWER RESPIRATORY TRACT INFECTION
     Dosage: 250 MG
  2. TIOTROPIUM (TIOTROPIUM) [Concomitant]
  3. IRBESARTAN [Concomitant]
  4. SIMVASTATIN [Concomitant]
  5. EZETIMIBE [Concomitant]
  6. CETIRIZINE HCL [Concomitant]
  7. ACETYLSALICYLIC ACID SRT [Concomitant]
  8. OXPRENOLOL (OXPRENOLOL) [Concomitant]

REACTIONS (4)
  - ALANINE AMINOTRANSFERASE INCREASED [None]
  - LIVER DISORDER [None]
  - LIVER FUNCTION TEST ABNORMAL [None]
  - PSEUDOPORPHYRIA [None]
